FAERS Safety Report 13839176 (Version 1)
Quarter: 2017Q3

REPORT INFORMATION
  Report Type: Spontaneous
  Country: US (occurrence: US)
  Receive Date: 20170807
  Receipt Date: 20170807
  Transmission Date: 20171127
  Serious: Yes (Other)
  Sender: FDA-Public Use
  Company Number: US-AMGEN-USASP2017117904

PATIENT
  Age: 60 Year
  Sex: Female

DRUGS (1)
  1. EPOGEN [Suspect]
     Active Substance: ERYTHROPOIETIN
     Indication: ANAEMIA
     Dosage: 30,000 UNIT, 3 TIMES/WK
     Route: 065

REACTIONS (3)
  - Tracheostomy [Unknown]
  - Therapy non-responder [Unknown]
  - Decubitus ulcer [Unknown]
